FAERS Safety Report 12298593 (Version 1)
Quarter: 2016Q2

REPORT INFORMATION
  Report Type: Spontaneous
  Country: JP (occurrence: JP)
  Receive Date: 20160425
  Receipt Date: 20160425
  Transmission Date: 20160815
  Serious: Yes (Hospitalization)
  Sender: FDA-Public Use
  Company Number: JP-ROCHE-1415554

PATIENT
  Age: 76 Year
  Sex: Female

DRUGS (1)
  1. BONVIVA [Suspect]
     Active Substance: IBANDRONATE SODIUM
     Indication: OSTEOPOROSIS
     Route: 042
     Dates: start: 20140527, end: 20140527

REACTIONS (4)
  - Back pain [Recovered/Resolved]
  - Pyrexia [Not Recovered/Not Resolved]
  - Chest pain [Recovered/Resolved]
  - Painful respiration [Unknown]

NARRATIVE: CASE EVENT DATE: 20140527
